FAERS Safety Report 25192955 (Version 5)
Quarter: 2025Q2

REPORT INFORMATION
  Report Type: Report from Study
  Country: ES (occurrence: ES)
  Receive Date: 20250414
  Receipt Date: 20250612
  Transmission Date: 20250716
  Serious: Yes (Hospitalization, Other)
  Sender: ABBVIE
  Company Number: ES-ABBVIE-6193362

PATIENT
  Age: 77 Year
  Sex: Female

DRUGS (2)
  1. FOSCARBIDOPA\FOSLEVODOPA [Suspect]
     Active Substance: FOSCARBIDOPA\FOSLEVODOPA
     Indication: Parkinson^s disease
     Route: 058
     Dates: start: 20241212
  2. FOSCARBIDOPA\FOSLEVODOPA [Suspect]
     Active Substance: FOSCARBIDOPA\FOSLEVODOPA
     Route: 058

REACTIONS (14)
  - Food intolerance [Recovering/Resolving]
  - Freezing phenomenon [Recovering/Resolving]
  - Disorientation [Recovering/Resolving]
  - Somnolence [Recovered/Resolved]
  - Dysphagia [Unknown]
  - Dehydration [Unknown]
  - Urinary tract infection [Recovering/Resolving]
  - Vomiting [Unknown]
  - Drooling [Recovering/Resolving]
  - Dysuria [Unknown]
  - Blood potassium decreased [Unknown]
  - Pneumonia aspiration [Recovering/Resolving]
  - Muscle atrophy [Unknown]
  - Blood albumin decreased [Unknown]

NARRATIVE: CASE EVENT DATE: 20250301
